FAERS Safety Report 9685718 (Version 1)
Quarter: 2013Q4

REPORT INFORMATION
  Report Type: Spontaneous
  Country: DE (occurrence: DE)
  Receive Date: 20131113
  Receipt Date: 20131113
  Transmission Date: 20140711
  Serious: Yes (Other)
  Sender: FDA-Public Use
  Company Number: DE-ASTRAZENECA-2013SE81907

PATIENT
  Age: 30 Year
  Sex: Female

DRUGS (11)
  1. QUETIAPIN [Suspect]
     Dosage: DAILY DOSE OF 200 TO 600 MG
     Route: 048
     Dates: start: 20130402
  2. QUETIAPIN [Interacting]
     Route: 048
     Dates: start: 20130408
  3. QUETIAPIN [Interacting]
     Route: 048
  4. HYPNOREX [Interacting]
     Route: 048
     Dates: start: 20130318
  5. HYPNOREX [Interacting]
     Route: 048
  6. HYPNOREX [Interacting]
     Route: 048
  7. ZUCLOPENTHIXOL [Interacting]
     Route: 048
     Dates: start: 20130409
  8. ZUCLOPENTHIXOL [Interacting]
     Route: 048
     Dates: start: 20130410
  9. ZUCLOPENTHIXOL [Interacting]
     Route: 048
     Dates: start: 20130412
  10. ZUCLOPENTHIXOL [Interacting]
     Route: 048
     Dates: start: 20130413
  11. DIAZEPAM [Concomitant]
     Route: 048
     Dates: start: 20130403

REACTIONS (2)
  - Drug interaction [Recovered/Resolved]
  - Parkinsonism [Recovered/Resolved]
